FAERS Safety Report 4964011-X (Version None)
Quarter: 2006Q2

REPORT INFORMATION
  Report Type: 
  Country: None (occurrence: None)
  Receive Date: 20060405
  Receipt Date: 20050422
  Transmission Date: 20061013
  Serious: Yes (Life-Threatening, Hospitalization, Disabling)
  Sender: FDA-Public Use
  Company Number: US-MERCK-0504USA04206

PATIENT
  Age: 52 Year
  Sex: Male
  Weight: 102 kg

DRUGS (11)
  1. VIOXX [Suspect]
     Indication: ARTHRITIS
     Route: 048
     Dates: start: 20000101, end: 20040101
  2. VIOXX [Suspect]
     Indication: GOUT
     Route: 048
     Dates: start: 20000101, end: 20040101
  3. GLUCOPHAGE [Concomitant]
     Indication: DIABETES MELLITUS NON-INSULIN-DEPENDENT
     Route: 048
  4. INDOCIN [Concomitant]
     Route: 048
  5. TENORMIN [Concomitant]
     Route: 048
  6. ZOCOR [Concomitant]
     Route: 065
  7. PROTONIX [Concomitant]
     Route: 065
  8. ASPIRIN [Concomitant]
     Route: 065
  9. LASIX [Concomitant]
     Route: 065
  10. ATACAND [Concomitant]
     Route: 065
  11. ALLOPURINOL MSD [Concomitant]
     Route: 065

REACTIONS (34)
  - ABDOMINAL PAIN UPPER [None]
  - ACUTE MYOCARDIAL INFARCTION [None]
  - ANXIETY [None]
  - BLOOD GLUCOSE INCREASED [None]
  - BLOOD PRESSURE INCREASED [None]
  - BRAIN STEM INFARCTION [None]
  - CALCULUS URETERIC [None]
  - CAROTID ARTERY ATHEROMA [None]
  - CEREBROVASCULAR ACCIDENT [None]
  - CHEST PAIN [None]
  - COORDINATION ABNORMAL [None]
  - CORONARY ARTERY DISEASE [None]
  - CORONARY ARTERY STENOSIS [None]
  - DISORIENTATION [None]
  - DIZZINESS [None]
  - DUODENITIS [None]
  - DYSPNOEA [None]
  - GASTRIC ULCER [None]
  - GASTROOESOPHAGEAL REFLUX DISEASE [None]
  - HEART RATE IRREGULAR [None]
  - HEPATIC STEATOSIS [None]
  - HEPATOMEGALY [None]
  - HIATUS HERNIA [None]
  - HYPERLIPIDAEMIA [None]
  - HYPERTENSION [None]
  - IMPAIRED WORK ABILITY [None]
  - NYSTAGMUS [None]
  - OEDEMA PERIPHERAL [None]
  - RENAL COLIC [None]
  - SLEEP APNOEA SYNDROME [None]
  - SUDDEN DEATH [None]
  - SWELLING [None]
  - VERTIGO [None]
  - WHEEZING [None]
